FAERS Safety Report 12216521 (Version 1)
Quarter: 2016Q1

REPORT INFORMATION
  Report Type: Spontaneous
  Country: FR (occurrence: FR)
  Receive Date: 20160329
  Receipt Date: 20160329
  Transmission Date: 20160526
  Serious: Yes (Other)
  Sender: FDA-Public Use
  Company Number: FR-SA-2016SA059121

PATIENT
  Age: 74 Year
  Sex: Female

DRUGS (5)
  1. ARAVA [Suspect]
     Active Substance: LEFLUNOMIDE
     Indication: SPONDYLITIS
     Route: 048
     Dates: start: 201407, end: 201504
  2. ESOMEPRAZOLE [Concomitant]
     Active Substance: ESOMEPRAZOLE
  3. DAFALGAN [Concomitant]
     Active Substance: ACETAMINOPHEN
  4. UVEDOSE [Concomitant]
     Active Substance: CHOLECALCIFEROL
  5. ACLASTA [Concomitant]
     Active Substance: ZOLEDRONIC ACID

REACTIONS (2)
  - Eczema [Recovered/Resolved]
  - Gamma-glutamyltransferase increased [Not Recovered/Not Resolved]

NARRATIVE: CASE EVENT DATE: 201503
